FAERS Safety Report 4736643-5 (Version None)
Quarter: 2005Q3

REPORT INFORMATION
  Report Type: 
  Country: None (occurrence: None)
  Receive Date: 20050808
  Receipt Date: 20050802
  Transmission Date: 20060218
  Serious: Yes (Death)
  Sender: FDA-Public Use
  Company Number: 2005SE04467

PATIENT
  Age: 29290 Day
  Sex: Male

DRUGS (11)
  1. SEROQUEL [Suspect]
     Indication: PSYCHOMOTOR HYPERACTIVITY
     Route: 048
     Dates: start: 20040224
  2. SEROQUEL [Suspect]
     Dosage: 25 + 50 MG
     Route: 048
  3. SEREPRILE [Suspect]
     Indication: PSYCHOMOTOR HYPERACTIVITY
     Route: 048
     Dates: start: 20040224
  4. SEREPRILE [Suspect]
     Route: 048
  5. TRITTICO [Suspect]
     Indication: PSYCHOMOTOR HYPERACTIVITY
     Route: 030
     Dates: start: 20040228
  6. TRITTICO [Suspect]
     Dosage: 50 + 100 + 150 MG
     Route: 048
  7. CARDIRENE [Concomitant]
     Route: 048
  8. NIMOTOP [Concomitant]
     Route: 048
  9. FOLINIC ACID [Concomitant]
     Route: 048
  10. CITICOLINE [Concomitant]
     Route: 048
  11. CLONAZEPAM [Concomitant]
     Route: 048
     Dates: end: 20040320

REACTIONS (5)
  - AGITATION [None]
  - BRONCHOPNEUMONIA [None]
  - CARDIAC ARREST [None]
  - CEREBRAL DISORDER [None]
  - HALLUCINATION [None]
